FAERS Safety Report 7908657-5 (Version None)
Quarter: 2011Q4

REPORT INFORMATION
  Report Type: 
  Country: None (occurrence: None)
  Receive Date: 20111111
  Receipt Date: 20111108
  Transmission Date: 20120403
  Serious: Yes (Other)
  Sender: FDA-Public Use
  Company Number: PHEH2011US008935

PATIENT
  Age: 65 Year
  Sex: Female
  Weight: 74.83 kg

DRUGS (1)
  1. RECLAST [Suspect]
     Dosage: 5 MG,ONCE A YEAR
     Route: 042
     Dates: start: 20111102

REACTIONS (3)
  - TACHYCARDIA [None]
  - SKIN EXFOLIATION [None]
  - SKIN CHAPPED [None]
